FAERS Safety Report 24765428 (Version 1)
Quarter: 2024Q4

REPORT INFORMATION
  Report Type: Spontaneous
  Country: US (occurrence: US)
  Receive Date: 20241223
  Receipt Date: 20241223
  Transmission Date: 20250114
  Serious: No
  Sender: PHARMACOSMOS A/S
  Company Number: US-NEBO-682485

PATIENT

DRUGS (1)
  1. MONOFERRIC [Suspect]
     Active Substance: FERRIC DERISOMALTOSE
     Indication: Product used for unknown indication
     Dates: start: 20241209

REACTIONS (2)
  - Extravasation [Unknown]
  - Product administration error [Recovered/Resolved]
